FAERS Safety Report 16518131 (Version 3)
Quarter: 2019Q3

REPORT INFORMATION
  Report Type: Spontaneous
  Country: CA (occurrence: CA)
  Receive Date: 20190702
  Receipt Date: 20190912
  Transmission Date: 20191004
  Serious: Yes (Other)
  Sender: FDA-Public Use
  Company Number: CA-PFIZER INC-2019260422

PATIENT
  Age: 83 Year
  Sex: Male

DRUGS (2)
  1. LORBRENA [Suspect]
     Active Substance: LORLATINIB
     Indication: NON-SMALL CELL LUNG CANCER
     Dosage: 75 MG, DAILY
     Route: 048
     Dates: start: 20190621, end: 201906
  2. LORBRENA [Suspect]
     Active Substance: LORLATINIB
     Dosage: 50 MG, ONCE A DAY

REACTIONS (5)
  - Hallucination [Not Recovered/Not Resolved]
  - Diarrhoea [Recovering/Resolving]
  - Fatigue [Not Recovered/Not Resolved]
  - Transient ischaemic attack [Unknown]
  - Pyrexia [Unknown]

NARRATIVE: CASE EVENT DATE: 201906
